FAERS Safety Report 16339262 (Version 2)
Quarter: 2024Q4

REPORT INFORMATION
  Report Type: Spontaneous
  Country: RO (occurrence: RO)
  Receive Date: 20190521
  Receipt Date: 20241220
  Transmission Date: 20250114
  Serious: Yes (Other)
  Sender: MYLAN
  Company Number: RO-PFM-2018-12098

PATIENT
  Age: 55 Year

DRUGS (4)
  1. ESOMEPRAZOLE [Suspect]
     Active Substance: ESOMEPRAZOLE
     Indication: Abdominal pain upper
     Dosage: 40 MILLIGRAM, QD,(1/DAY)
     Route: 048
  2. DOMPERIDONE [Suspect]
     Active Substance: DOMPERIDONE
     Indication: Abdominal pain upper
     Dosage: 10 MILLIGRAM, Q8H
     Route: 048
  3. DOMPERIDONE [Suspect]
     Active Substance: DOMPERIDONE
     Indication: Nausea
  4. DOMPERIDONE [Suspect]
     Active Substance: DOMPERIDONE
     Indication: Vomiting

REACTIONS (1)
  - Oropharyngeal squamous cell carcinoma [Unknown]
